FAERS Safety Report 7716233-2 (Version None)
Quarter: 2011Q3

REPORT INFORMATION
  Report Type: 
  Country: None (occurrence: None)
  Receive Date: 20110829
  Receipt Date: 20110822
  Transmission Date: 20111222
  Serious: Yes (Hospitalization)
  Sender: FDA-Public Use
  Company Number: US-B.I. PHARMACEUTICALS,INC./RIDGEFIELD-2011-BP-20541BP

PATIENT
  Age: 86 Year
  Sex: Female

DRUGS (9)
  1. LEXAPRO [Concomitant]
     Indication: DEPRESSION
  2. METOPROLOL TARTRATE [Concomitant]
     Indication: HYPERTENSION
  3. DIOVAN [Concomitant]
     Indication: HYPERTENSION
  4. ASPIRIN [Concomitant]
     Indication: ATRIAL FIBRILLATION
  5. ZOCOR [Concomitant]
     Indication: BLOOD CHOLESTEROL INCREASED
  6. PRADAXA [Suspect]
     Indication: ATRIAL FIBRILLATION
     Dosage: 150 MG
     Route: 048
     Dates: start: 20110813
  7. POTASSIUM [Concomitant]
     Indication: SUPPLEMENTATION THERAPY
  8. VITAMIN D [Concomitant]
     Indication: SUPPLEMENTATION THERAPY
  9. LASIX [Concomitant]
     Indication: CARDIAC FAILURE CONGESTIVE

REACTIONS (1)
  - CHEST PAIN [None]
